FAERS Safety Report 5744244-5 (Version None)
Quarter: 2008Q2

REPORT INFORMATION
  Report Type: 
  Country: None (occurrence: None)
  Receive Date: 20080520
  Receipt Date: 20080513
  Transmission Date: 20081010
  Serious: Yes (Other)
  Sender: FDA-Public Use
  Company Number: IL-AVENTIS-200812108EU

PATIENT
  Age: 74 Year
  Sex: Female

DRUGS (18)
  1. ENOXAPARIN SODIUM [Suspect]
     Route: 058
     Dates: start: 20071009, end: 20071018
  2. SLOW-FE                            /00023503/ [Concomitant]
     Route: 048
     Dates: start: 20071009, end: 20071012
  3. SLOW-FE                            /00023503/ [Concomitant]
     Dates: start: 20071013, end: 20071013
  4. SLOW-FE                            /00023503/ [Concomitant]
     Route: 048
     Dates: start: 20071009, end: 20071012
  5. SLOW-FE                            /00023503/ [Concomitant]
     Dates: start: 20071013, end: 20071013
  6. OXYCONTIN [Concomitant]
     Route: 048
     Dates: start: 20071009, end: 20071011
  7. OXYCONTIN [Concomitant]
     Dates: start: 20071010, end: 20071010
  8. OXYCONTIN [Concomitant]
     Dates: start: 20071011, end: 20071012
  9. OXYCONTIN [Concomitant]
     Dates: start: 20071013, end: 20071013
  10. OXYCOD                             /00045603/ [Concomitant]
     Route: 048
     Dates: start: 20071010, end: 20071010
  11. MIDAZOLAM HCL [Concomitant]
     Dates: start: 20071008, end: 20071008
  12. MARCAINE                           /00330101/ [Concomitant]
     Dates: start: 20071008, end: 20071008
  13. FENTANYL [Concomitant]
     Dates: start: 20071008, end: 20071008
  14. CEFAMEZIN                          /00288502/ [Concomitant]
     Dates: start: 20071008, end: 20071008
  15. MORPHINE [Concomitant]
     Dates: start: 20071008, end: 20071008
  16. SODIUM CHLORIDE [Concomitant]
     Dates: start: 20071008, end: 20071008
  17. RINGERS                            /00047801/ [Concomitant]
     Dates: start: 20071008, end: 20071008
  18. OPTALGIN [Concomitant]
     Dates: start: 20071010, end: 20071010

REACTIONS (2)
  - ALANINE AMINOTRANSFERASE INCREASED [None]
  - HEPATIC ENZYME INCREASED [None]
